FAERS Safety Report 9270799 (Version 1)
Quarter: 2013Q2

REPORT INFORMATION
  Report Type: Spontaneous
  Country: FR (occurrence: FR)
  Receive Date: 20130506
  Receipt Date: 20130506
  Transmission Date: 20140414
  Serious: Yes (Other)
  Sender: FDA-Public Use
  Company Number: FR-ROCHE-1221038

PATIENT
  Age: 86 Year
  Sex: Female

DRUGS (11)
  1. ZELBORAF [Suspect]
     Indication: MALIGNANT MELANOMA
     Route: 048
     Dates: start: 20130317
  2. TRAMADOL [Concomitant]
     Route: 048
  3. COAPROVEL [Concomitant]
     Route: 048
  4. LEVOTHYROX [Concomitant]
     Route: 048
  5. OXYBUTYNIN [Concomitant]
     Route: 048
  6. LERCANIDIPINE [Concomitant]
     Route: 048
  7. HEXAQUINE [Concomitant]
     Route: 048
  8. ZOPICLONE [Concomitant]
     Route: 048
  9. ACTONEL [Concomitant]
     Route: 048
  10. DOLIPRANE [Concomitant]
     Route: 048
  11. APRANAX [Concomitant]
     Route: 048

REACTIONS (1)
  - Eczema [Recovered/Resolved]
